FAERS Safety Report 8863215 (Version 1)
Quarter: 2012Q4

REPORT INFORMATION
  Report Type: Report from Study
  Country: US (occurrence: US)
  Receive Date: 20121025
  Receipt Date: 20121025
  Transmission Date: 20130627
  Serious: No
  Sender: FDA-Public Use
  Company Number: US-ABBOTT-12P-163-0892712-00

PATIENT
  Sex: Female
  Weight: 44.04 kg

DRUGS (3)
  1. LUPRON DEPOT 3.75 MG [Suspect]
     Indication: ENDOMETRIOSIS
     Dates: start: 201109
  2. ULTRAM [Concomitant]
     Indication: BACK PAIN
  3. NORETHINDRONE ACETATE [Concomitant]
     Indication: PRODUCT USED FOR UNKNOWN INDICATION
     Dates: start: 201109

REACTIONS (2)
  - Vaginal haemorrhage [Not Recovered/Not Resolved]
  - Injection site pain [Recovered/Resolved]
